FAERS Safety Report 20143765 (Version 3)
Quarter: 2021Q4

REPORT INFORMATION
  Report Type: Spontaneous
  Country: JP (occurrence: JP)
  Receive Date: 20211203
  Receipt Date: 20211216
  Transmission Date: 20220303
  Serious: Yes (Hospitalization, Disabling, Other)
  Sender: FDA-Public Use
  Company Number: JP-GSKJP-JP2021JPN209662AA

PATIENT
  Age: 88 Year
  Sex: Female
  Weight: 63 kg

DRUGS (9)
  1. TRELEGY ELLIPTA [Suspect]
     Active Substance: FLUTICASONE FUROATE\UMECLIDINIUM BROMIDE\VILANTEROL TRIFENATATE
     Indication: Asthma
     Dosage: 100 UG, QD
     Dates: start: 20210317
  2. MONTELUKAST SODIUM [Concomitant]
     Active Substance: MONTELUKAST SODIUM
     Indication: Cough
     Dosage: 10 MG, QD, AFTER DINNER
     Dates: start: 201204
  3. MONTELUKAST SODIUM [Concomitant]
     Active Substance: MONTELUKAST SODIUM
     Indication: Productive cough
  4. PROCATEROL HYDROCHLORIDE [Concomitant]
     Active Substance: PROCATEROL HYDROCHLORIDE
     Indication: Cough
     Dosage: 50 ?G, QD, BEFORE BED
     Dates: start: 201204
  5. PROCATEROL HYDROCHLORIDE [Concomitant]
     Active Substance: PROCATEROL HYDROCHLORIDE
     Indication: Productive cough
  6. MUCOSOLVAN TABLET [Concomitant]
     Indication: Cough
     Dosage: 45 MG, QD, AFTER DINNER
     Dates: start: 201204
  7. MUCOSOLVAN TABLET [Concomitant]
     Indication: Productive cough
  8. HUSTAZOL [Concomitant]
     Indication: Cough
     Dosage: 20 MG, TID
     Dates: start: 201204
  9. HUSTAZOL [Concomitant]
     Indication: Productive cough

REACTIONS (11)
  - Dyspnoea [Recovering/Resolving]
  - Chronic obstructive pulmonary disease [Recovered/Resolved]
  - Bronchiolitis [Recovered/Resolved]
  - Dementia [Not Recovered/Not Resolved]
  - Cyanosis [Recovering/Resolving]
  - Respiratory failure [Recovered/Resolved]
  - Pneumonia [Recovering/Resolving]
  - Cough [Recovering/Resolving]
  - Productive cough [Recovering/Resolving]
  - Blood pressure diastolic decreased [Recovered/Resolved]
  - Blood pressure systolic decreased [Recovered/Resolved]

NARRATIVE: CASE EVENT DATE: 20211001
